FAERS Safety Report 6537323-6 (Version None)
Quarter: 2010Q1

REPORT INFORMATION
  Report Type: 
  Country: None (occurrence: None)
  Receive Date: 20100107
  Receipt Date: 20081217
  Transmission Date: 20100710
  Serious: Yes (Hospitalization)
  Sender: FDA-Public Use
  Company Number: 2008AP003482

PATIENT
  Age: 18 Year
  Sex: Female

DRUGS (3)
  1. SALBUTAMOL (SALBUTAMOL) [Suspect]
     Indication: ASTHMA
     Dosage: IV_INF;IV
     Route: 042
  2. SALBUTAMOL (SALBUTAMOL) [Suspect]
     Dosage: NEB_SOL;INH
     Route: 055
  3. CORTICOSTEROIDS (CORTICOSTEROIDS) [Concomitant]

REACTIONS (9)
  - FATIGUE [None]
  - HYPERGLYCAEMIA [None]
  - HYPOKALAEMIA [None]
  - LACTIC ACIDOSIS [None]
  - RESPIRATORY ACIDOSIS [None]
  - RESPIRATORY FAILURE [None]
  - SOMNOLENCE [None]
  - TACHYCARDIA [None]
  - WHEEZING [None]
